FAERS Safety Report 7639088-3 (Version None)
Quarter: 2011Q3

REPORT INFORMATION
  Report Type: 
  Country: None (occurrence: None)
  Receive Date: 20110727
  Receipt Date: 20110708
  Transmission Date: 20111222
  Serious: No
  Sender: FDA-Public Use
  Company Number: US-ROXANE LABORATORIES, INC.-2011-RO-00999RO

PATIENT
  Sex: Male

DRUGS (2)
  1. FLUTICASONE PROPIONATE [Suspect]
     Indication: ALLERGIC SINUSITIS
     Route: 045
  2. ASTELIN [Concomitant]
     Indication: HYPERSENSITIVITY

REACTIONS (2)
  - ANOSMIA [None]
  - AGEUSIA [None]
